FAERS Safety Report 6494101-4 (Version None)
Quarter: 2009Q4

REPORT INFORMATION
  Report Type: 
  Country: None (occurrence: None)
  Receive Date: 20091214
  Receipt Date: 20090105
  Transmission Date: 20100525
  Serious: No
  Sender: FDA-Public Use
  Company Number: US-BRISTOL-MYERS SQUIBB COMPANY-14458046

PATIENT
  Age: 2 Decade
  Sex: Male

DRUGS (1)
  1. ABILIFY [Suspect]

REACTIONS (2)
  - DYSTONIA [None]
  - PARAESTHESIA [None]
